FAERS Safety Report 9100201 (Version 1)
Quarter: 2013Q1

REPORT INFORMATION
  Report Type: Spontaneous
  Country: DE (occurrence: DE)
  Receive Date: 20130215
  Receipt Date: 20130215
  Transmission Date: 20140127
  Serious: Yes (Other)
  Sender: FDA-Public Use
  Company Number: DE-ROCHE-1186779

PATIENT
  Sex: Female
  Weight: 86 kg

DRUGS (8)
  1. HERCEPTIN [Suspect]
     Indication: BREAST CANCER METASTATIC
     Route: 042
     Dates: start: 20110310
  2. XELODA [Suspect]
     Indication: BREAST CANCER METASTATIC
     Route: 065
  3. NAVELBINE [Suspect]
     Indication: BREAST CANCER METASTATIC
     Route: 042
     Dates: start: 20121116, end: 20130114
  4. TAXOL [Concomitant]
     Indication: BREAST CANCER METASTATIC
  5. LAPATINIB [Concomitant]
     Indication: BREAST CANCER METASTATIC
  6. L-THYROXIN [Concomitant]
     Indication: HYPOTHYROIDISM
     Route: 065
     Dates: start: 201202
  7. RAMIPRIL [Concomitant]
     Indication: HYPERTENSION
     Route: 048
  8. BELOKEN [Concomitant]
     Indication: HYPERTENSION
     Route: 048

REACTIONS (1)
  - Neoplasm malignant [Not Recovered/Not Resolved]
